FAERS Safety Report 9899290 (Version 2)
Quarter: 2014Q1

REPORT INFORMATION
  Report Type: Spontaneous
  Country: US (occurrence: US)
  Receive Date: 20140214
  Receipt Date: 20140214
  Transmission Date: 20141002
  Serious: No
  Sender: FDA-Public Use
  Company Number: US-GILEAD-2011-0046439

PATIENT
  Sex: Female

DRUGS (4)
  1. LETAIRIS [Suspect]
     Indication: PULMONARY HYPERTENSION
     Dosage: 10 UNK, UNK
     Route: 048
  2. LETAIRIS [Suspect]
     Dosage: 5 MG, UNK
     Route: 048
     Dates: start: 20110612
  3. LETAIRIS [Suspect]
     Dosage: 5 UNK, UNK
     Route: 048
  4. REVATIO [Concomitant]

REACTIONS (4)
  - Hyposmia [Unknown]
  - Oropharyngeal blistering [Recovered/Resolved]
  - Dyspnoea [Unknown]
  - Nasal congestion [Unknown]
